FAERS Safety Report 4288792-6 (Version None)
Quarter: 2004Q1

REPORT INFORMATION
  Report Type: 
  Country: None (occurrence: None)
  Receive Date: 20040130
  Receipt Date: 20030608
  Transmission Date: 20041129
  Serious: Yes (Hospitalization)
  Sender: FDA-Public Use
  Company Number: PHEH2003US04816

PATIENT
  Age: 39 Year

DRUGS (3)
  1. RITALIN [Suspect]
     Dosage: 5 MG
  2. METHYLPHENIDATE HCL [Suspect]
     Dosage: 5 MG
  3. DDVAT [Concomitant]

REACTIONS (2)
  - ABNORMAL BEHAVIOUR [None]
  - OVERDOSE [None]
